FAERS Safety Report 10442237 (Version 1)
Quarter: 2014Q3

REPORT INFORMATION
  Report Type: Spontaneous
  Country: DE (occurrence: DE)
  Receive Date: 20140909
  Receipt Date: 20140909
  Transmission Date: 20150326
  Serious: Yes (Other)
  Sender: FDA-Public Use
  Company Number: DE-PFIZER INC-2014248143

PATIENT

DRUGS (11)
  1. AMLODIPINE BESILATE [Suspect]
     Active Substance: AMLODIPINE BESYLATE
  2. SIMVASTATIN. [Suspect]
     Active Substance: SIMVASTATIN
  3. PRAMIPEXOLE 2HCL [Suspect]
     Active Substance: PRAMIPEXOLE
  4. CLOPIDOGREL [Suspect]
     Active Substance: CLOPIDOGREL BISULFATE
  5. SPIRIVA RESPIMAT [Suspect]
     Active Substance: TIOTROPIUM BROMIDE
  6. NEBIVOLOL [Suspect]
     Active Substance: NEBIVOLOL
  7. DEKRISTOL 20 000 I.E. [Suspect]
     Active Substance: CHOLECALCIFEROL
     Dosage: 20000 I.E., UNK
  8. ATROVENT [Suspect]
     Active Substance: IPRATROPIUM BROMIDE
  9. OMEPRAZOLE. [Suspect]
     Active Substance: OMEPRAZOLE
  10. ASPIRIN. [Suspect]
     Active Substance: ASPIRIN
  11. PREDNISOLON [Suspect]
     Active Substance: PREDNISOLONE

REACTIONS (1)
  - Pulmonary hypertension [Unknown]
